FAERS Safety Report 4665245-4 (Version None)
Quarter: 2005Q2

REPORT INFORMATION
  Report Type: 
  Country: None (occurrence: None)
  Receive Date: 20050518
  Receipt Date: 20050131
  Transmission Date: 20051028
  Serious: Yes (Hospitalization)
  Sender: FDA-Public Use
  Company Number: US-MERCK-0502USA00078

PATIENT
  Age: 67 Year
  Sex: Female
  Weight: 82 kg

DRUGS (12)
  1. VIOXX [Suspect]
     Indication: ARTHRITIS
     Route: 048
     Dates: start: 19990616, end: 20011203
  2. VIOXX [Suspect]
     Route: 048
     Dates: start: 20011210, end: 20020501
  3. OGEN [Concomitant]
     Route: 065
  4. PROGESTERONE [Concomitant]
     Route: 065
  5. ANTIMICROBIAL (UNSPECIFIED) [Concomitant]
     Route: 065
  6. LIPITOR [Concomitant]
     Indication: BLOOD CHOLESTEROL INCREASED
     Route: 065
  7. TOPROL-XL [Concomitant]
     Indication: HYPERTENSION
     Route: 065
     Dates: start: 20020101
  8. NORVASC [Concomitant]
     Indication: HYPERTENSION
     Route: 065
     Dates: start: 20020101
  9. ASPIRIN [Concomitant]
     Indication: CEREBROVASCULAR ACCIDENT PROPHYLAXIS
     Route: 065
     Dates: start: 20020101
  10. LOPRESSOR [Concomitant]
     Route: 065
     Dates: start: 20020130
  11. NAPROXEN [Concomitant]
     Route: 065
     Dates: start: 19990501, end: 20020501
  12. DAYPRO [Concomitant]
     Route: 065
     Dates: start: 19990101, end: 19990601

REACTIONS (10)
  - AMNESIA [None]
  - ASTHENIA [None]
  - CATARACT [None]
  - CEREBROVASCULAR ACCIDENT [None]
  - CONFUSIONAL STATE [None]
  - DISTURBANCE IN ATTENTION [None]
  - DRUG INEFFECTIVE [None]
  - EMOTIONAL DISTRESS [None]
  - KNEE ARTHROPLASTY [None]
  - LACUNAR INFARCTION [None]
